FAERS Safety Report 25959225 (Version 2)
Quarter: 2025Q4

REPORT INFORMATION
  Report Type: Spontaneous
  Country: US (occurrence: US)
  Receive Date: 20251025
  Receipt Date: 20251029
  Transmission Date: 20260117
  Serious: No
  Sender: ABBVIE
  Company Number: US-ABBVIE-6518762

PATIENT
  Age: 26 Year
  Sex: Male

DRUGS (2)
  1. SKYRIZI [Suspect]
     Active Substance: RISANKIZUMAB-RZAA
     Indication: Crohn^s disease
     Dosage: TIME INTERVAL: TOTAL: STRENGTH-180MG
     Route: 058
     Dates: start: 20250703
  2. SKYRIZI [Suspect]
     Active Substance: RISANKIZUMAB-RZAA
     Indication: Crohn^s disease
     Dosage: TIME INTERVAL: TOTAL: STRENGTH: 600 MILLIGRAM
     Route: 042
     Dates: start: 20250605, end: 20250606

REACTIONS (1)
  - Product storage error [Not Recovered/Not Resolved]

NARRATIVE: CASE EVENT DATE: 20251022
